FAERS Safety Report 9001037 (Version 1)
Quarter: 2013Q1

REPORT INFORMATION
  Report Type: Spontaneous
  Country: US (occurrence: None)
  Receive Date: 20130103
  Receipt Date: 20130103
  Transmission Date: 20140127
  Serious: Yes (Other)
  Sender: FDA-Public Use
  Company Number: None

PATIENT
  Age: 22 Year
  Sex: Male

DRUGS (2)
  1. GABITRIL [Suspect]
     Indication: CONVULSION
     Route: 048
     Dates: start: 20111101
  2. ORAP [Suspect]
     Indication: TIC
     Dosage: 1/2 QAM   1/2 QPM
     Route: 048
     Dates: start: 20111101

REACTIONS (1)
  - Drug ineffective [None]
